FAERS Safety Report 16078058 (Version 1)
Quarter: 2019Q1

REPORT INFORMATION
  Report Type: Spontaneous
  Country: US (occurrence: US)
  Receive Date: 20190315
  Receipt Date: 20190315
  Transmission Date: 20190418
  Serious: No
  Sender: FDA-Public Use
  Company Number: US-ASTRAZENECA-2019SE29224

PATIENT
  Sex: Female

DRUGS (1)
  1. FASENRA [Suspect]
     Active Substance: BENRALIZUMAB
     Dosage: EVERY MONTH FOR THE FIRST 3 DOSES, THEN EVERY OTHER MONTH THEREAFTER AS OF MONDAY
     Route: 058

REACTIONS (2)
  - Arthralgia [Recovering/Resolving]
  - Pain [Recovering/Resolving]
